FAERS Safety Report 6423008-3 (Version None)
Quarter: 2009Q4

REPORT INFORMATION
  Report Type: 
  Country: None (occurrence: None)
  Receive Date: 20091027
  Receipt Date: 20090115
  Transmission Date: 20100525
  Serious: Yes (Hospitalization)
  Sender: FDA-Public Use
  Company Number: SPV1-2009-00110

PATIENT
  Age: 79 Year
  Sex: Male
  Weight: 39.8 kg

DRUGS (6)
  1. MIDODRINE HYDROCHLORIDE [Suspect]
     Dosage: 10 MG, 3X/DAY; TID, ORAL
     Route: 048
     Dates: start: 20080604
  2. FLORINEF [Suspect]
     Dosage: 0.2 MG, 1X/DAY;QD, ORAL
     Route: 048
     Dates: start: 20081103
  3. SEROQUEL [Suspect]
     Dosage: 12.5 MG, 1X/DAY;QD, ORAL 6.25 MG, 1X/DAY; QD, ORAL
     Route: 048
     Dates: start: 20081103, end: 20081107
  4. SEROQUEL [Suspect]
     Dosage: 12.5 MG, 1X/DAY;QD, ORAL 6.25 MG, 1X/DAY; QD, ORAL
     Route: 048
     Dates: start: 20081108
  5. SALOFALK /00747601/ (MESALAZINE) [Concomitant]
  6. AZILECT /01759902/ (RASAGILINE MESYLATE) [Concomitant]

REACTIONS (1)
  - BRADYCARDIA [None]
